FAERS Safety Report 8829148 (Version 1)
Quarter: 2012Q4

REPORT INFORMATION
  Report Type: 
  Country: US (occurrence: US)
  Receive Date: 20121009
  Receipt Date: 20121009
  Transmission Date: 20130627
  Serious: Yes (Other)
  Sender: FDA-Public Use
  Company Number: US-AMGEN-USASP2012062780

PATIENT
  Age: 59 Year
  Sex: Male
  Weight: 84 kg

DRUGS (18)
  1. PROCRIT [Suspect]
     Indication: ANAEMIA
     Dosage: 20000 unit, 3 times/wk
     Dates: end: 201209
  2. COMBIVENT [Concomitant]
     Indication: CHRONIC OBSTRUCTIVE PULMONARY DISEASE
     Dosage: 103/18mcg inhalent
  3. LIPITOR [Concomitant]
     Indication: BLOOD CHOLESTEROL
     Dosage: 20 mg, UNK
     Route: 048
  4. PLAVIX [Concomitant]
     Indication: CARDIAC DISORDER
     Dosage: 75 mg, UNK
     Route: 048
  5. GENGRAF [Concomitant]
     Indication: PANCREAS TRANSPLANT
     Dosage: 25 mg, UNK
     Route: 048
  6. PREVACID [Concomitant]
     Indication: PANCREAS TRANSPLANT
     Dosage: 25 mg, UNK
     Route: 048
  7. SYNTHROID [Concomitant]
     Indication: HYPOTHYROIDISM
     Dosage: 50 mug, UNK
     Route: 048
  8. ATIVAN [Concomitant]
     Indication: ANXIETY
     Dosage: 1 mg, bid
     Route: 048
  9. ZEMPLAR [Concomitant]
     Indication: RENAL FAILURE CHRONIC
     Dosage: 2 mug, qwk
  10. PREDNISONE [Concomitant]
     Indication: PANCREAS TRANSPLANT
     Dosage: 5 mg, UNK
     Route: 048
  11. RENVELA [Concomitant]
     Indication: RENAL FAILURE CHRONIC
     Dosage: 800 mg, UNK
     Route: 048
  12. FLOMAX                             /00889901/ [Concomitant]
     Indication: BENIGN PROSTATIC HYPERPLASIA
     Dosage: 0.4 mg, UNK
     Route: 048
  13. AMBIEN [Concomitant]
     Indication: INSOMNIA
     Dosage: 10 mg, UNK
     Route: 048
  14. ALBUTEROL                          /00139501/ [Concomitant]
     Indication: CHRONIC OBSTRUCTIVE PULMONARY DISEASE
     Dosage: 25 mg, inhalant
  15. NORVASC [Concomitant]
     Indication: HYPERTENSION
     Dosage: 2.5 mg, UNK
     Route: 048
  16. COREG [Concomitant]
     Indication: HYPERTENSION
     Dosage: 12.5 mg, UNK
     Route: 048
  17. FLEXERIL                           /00428402/ [Concomitant]
     Indication: BACK PAIN
     Dosage: 10 mg, UNK
     Route: 048
  18. OXYCODONE [Concomitant]
     Indication: PAIN
     Dosage: 5 mg, UNK
     Route: 048

REACTIONS (1)
  - Aplasia pure red cell [Not Recovered/Not Resolved]
